FAERS Safety Report 9109010 (Version 1)
Quarter: 2013Q1

REPORT INFORMATION
  Report Type: Spontaneous
  Country: US (occurrence: US)
  Receive Date: 20130222
  Receipt Date: 20130222
  Transmission Date: 20140127
  Serious: No
  Sender: FDA-Public Use
  Company Number: US-ASTRAZENECA-2013SE05322

PATIENT
  Age: 54 Year
  Sex: Female

DRUGS (2)
  1. PRILOSEC OTC [Suspect]
     Indication: HYPERCHLORHYDRIA
     Route: 048
  2. PRILOSEC [Suspect]
     Indication: HYPERCHLORHYDRIA
     Route: 048

REACTIONS (10)
  - Arthritis [Recovering/Resolving]
  - Chills [Recovering/Resolving]
  - Choking sensation [Recovering/Resolving]
  - Fatigue [Recovering/Resolving]
  - Sensation of foreign body [Recovering/Resolving]
  - Hot flush [Recovering/Resolving]
  - Musculoskeletal stiffness [Recovering/Resolving]
  - Arthralgia [Recovering/Resolving]
  - Incorrect drug administration duration [Unknown]
  - Off label use [Unknown]
